FAERS Safety Report 9381911 (Version 1)
Quarter: 2013Q3

REPORT INFORMATION
  Report Type: Spontaneous
  Country: IT (occurrence: IT)
  Receive Date: 20130703
  Receipt Date: 20130703
  Transmission Date: 20140515
  Serious: Yes (Life-Threatening)
  Sender: FDA-Public Use
  Company Number: IT-GE HEALTHCARE MEDICAL DIAGNOSTICS-OMPQ-NO-1306S-0825

PATIENT
  Age: 79 Year
  Sex: Female
  Weight: 82 kg

DRUGS (6)
  1. OMNIPAQUE [Suspect]
     Indication: PRODUCT USED FOR UNKNOWN INDICATION
     Route: 042
     Dates: start: 20130624, end: 20130624
  2. OMNIPAQUE [Suspect]
     Indication: DIAGNOSTIC PROCEDURE
  3. PAROXETINE [Concomitant]
     Indication: DEPRESSION
     Route: 048
     Dates: start: 20120101, end: 20130624
  4. VALSARTAN ABC [Concomitant]
     Indication: HYPERTENSION
     Route: 048
     Dates: start: 20110101, end: 20130624
  5. LASIX [Concomitant]
     Route: 048
     Dates: start: 20120101, end: 20130624
  6. COUMADINE [Concomitant]
     Indication: DEEP VEIN THROMBOSIS
     Route: 048
     Dates: start: 20110101, end: 20130624

REACTIONS (4)
  - Cardio-respiratory arrest [Recovering/Resolving]
  - Cyanosis [Recovering/Resolving]
  - Pallor [Recovering/Resolving]
  - Agitation [Recovering/Resolving]
